FAERS Safety Report 4380677-X (Version None)
Quarter: 2004Q2

REPORT INFORMATION
  Report Type: 
  Country: None (occurrence: None)
  Receive Date: 20040618
  Receipt Date: 20040607
  Transmission Date: 20050107
  Serious: Yes (Death, Hospitalization)
  Sender: FDA-Public Use
  Company Number: FR-BRISTOL-MYERS SQUIBB COMPANY-12607461

PATIENT
  Age: 60 Week

DRUGS (3)
  1. STAVUDINE [Suspect]
     Indication: HIV INFECTION
  2. DIDANOSINE [Suspect]
     Indication: HIV INFECTION
  3. NELFINAVIR [Suspect]
     Indication: HIV INFECTION

REACTIONS (6)
  - ARTHRITIS [None]
  - BRONCHIOLITIS [None]
  - CENTRAL VENOUS CATHETERISATION [None]
  - OBLITERATIVE BRONCHIOLITIS [None]
  - PREMATURE BABY [None]
  - RESPIRATORY DISTRESS [None]
